FAERS Safety Report 18227749 (Version 1)
Quarter: 2020Q3

REPORT INFORMATION
  Report Type: Spontaneous
  Country: US (occurrence: US)
  Receive Date: 20200902
  Receipt Date: 20200902
  Transmission Date: 20201103
  Serious: Yes (Hospitalization)
  Sender: FDA-Public Use
  Company Number: None

PATIENT
  Age: 75 Year
  Sex: Male
  Weight: 98 kg

DRUGS (1)
  1. ROSUVASTATIN (ROSUVASTATIN CA 10MG TAB) [Suspect]
     Active Substance: ROSUVASTATIN
     Indication: HYPERLIPIDAEMIA
     Dosage: ?          OTHER FREQUENCY:BEDTIME;?
     Route: 048
     Dates: start: 20171206, end: 20191205

REACTIONS (8)
  - Rhabdomyolysis [None]
  - Blood creatinine increased [None]
  - Dizziness [None]
  - Myalgia [None]
  - Arthralgia [None]
  - Blood urea increased [None]
  - Fatigue [None]
  - Acute kidney injury [None]

NARRATIVE: CASE EVENT DATE: 20191205
